FAERS Safety Report 25752675 (Version 3)
Quarter: 2025Q4

REPORT INFORMATION
  Report Type: Spontaneous
  Country: JP (occurrence: JP)
  Receive Date: 20250902
  Receipt Date: 20251008
  Transmission Date: 20260117
  Serious: Yes (Death, Hospitalization, Other)
  Sender: ELI LILLY AND COMPANY
  Company Number: JP-ELI_LILLY_AND_COMPANY-JP202509000141

PATIENT
  Age: 80 Year
  Sex: Female
  Weight: 49 kg

DRUGS (2)
  1. VERZENIO [Suspect]
     Active Substance: ABEMACICLIB
     Indication: Breast cancer recurrent
     Dosage: 150 MG, BID
     Route: 048
     Dates: start: 20250527, end: 20250610
  2. FASLODEX [Suspect]
     Active Substance: FULVESTRANT
     Indication: Breast cancer recurrent
     Dosage: UNK
     Route: 030
     Dates: start: 20250527

REACTIONS (13)
  - Heat illness [Fatal]
  - Malnutrition [Unknown]
  - Enterocolitis [Unknown]
  - Dehydration [Unknown]
  - Diarrhoea [Unknown]
  - Sepsis [Unknown]
  - Hypoaesthesia [Unknown]
  - Muscle spasms [Unknown]
  - Malaise [Unknown]
  - Decreased appetite [Unknown]
  - Platelet count decreased [Unknown]
  - White blood cell count decreased [Unknown]
  - Vomiting [Unknown]

NARRATIVE: CASE EVENT DATE: 20250101
